FAERS Safety Report 15406208 (Version 1)
Quarter: 2018Q3

REPORT INFORMATION
  Report Type: Spontaneous
  Country: US (occurrence: US)
  Receive Date: 20180918
  Receipt Date: 20180918
  Transmission Date: 20181010
  Serious: Yes (Life-Threatening)
  Sender: FDA-Public Use
  Company Number: None

PATIENT
  Age: 53 Year
  Sex: Male
  Weight: 114.3 kg

DRUGS (1)
  1. DULERA [Suspect]
     Active Substance: FORMOTEROL FUMARATE DIHYDRATE\MOMETASONE FUROATE
     Indication: ASTHMA
     Dosage: ?          QUANTITY:1 PUGG  ?                               LUNGS
     Dates: start: 20150901, end: 20180701

REACTIONS (4)
  - Hypoxia [None]
  - Dyspnoea [None]
  - Respiratory arrest [None]
  - Pulmonary function test decreased [None]

NARRATIVE: CASE EVENT DATE: 20180601
